FAERS Safety Report 21754965 (Version 1)
Quarter: 2022Q4

REPORT INFORMATION
  Report Type: Spontaneous
  Country: DE (occurrence: DE)
  Receive Date: 20221220
  Receipt Date: 20221220
  Transmission Date: 20230113
  Serious: Yes (Other)
  Sender: FDA-Public Use
  Company Number: DE-AMERICAN REGENT INC-2022003597

PATIENT
  Age: 31 Year
  Sex: Female

DRUGS (1)
  1. FERINJECT [Suspect]
     Active Substance: FERRIC CARBOXYMALTOSE
     Indication: Product used for unknown indication
     Dosage: 1000 MG (20 ML) DILUTED IN 250 ML OF SODIUM CHLORIDE (NACL)
     Dates: start: 20221109, end: 20221109

REACTIONS (5)
  - Circulatory collapse [Unknown]
  - Burning sensation [Unknown]
  - Palpitations [Unknown]
  - Tachycardia [Unknown]
  - Nausea [Unknown]

NARRATIVE: CASE EVENT DATE: 20221101
